FAERS Safety Report 6590663-7 (Version None)
Quarter: 2010Q1

REPORT INFORMATION
  Report Type: 
  Country: None (occurrence: None)
  Receive Date: 20100219
  Receipt Date: 20100210
  Transmission Date: 20100710
  Serious: Yes (Life-Threatening, Hospitalization)
  Sender: FDA-Public Use
  Company Number: B0529911A

PATIENT
  Sex: Female
  Weight: 90 kg

DRUGS (5)
  1. LAPATINIB [Suspect]
     Dosage: 1250MG PER DAY
     Route: 048
     Dates: start: 20080116
  2. CAPECITABINE [Suspect]
     Dosage: 3300MG PER DAY
     Route: 048
     Dates: start: 20080116
  3. DEXAMETHASONE [Concomitant]
     Dosage: 1MG PER DAY
     Route: 048
     Dates: start: 20080331
  4. OMEPRAZOL [Concomitant]
     Dosage: 40MG PER DAY
     Route: 048
     Dates: start: 20080331
  5. ZOPICLON [Concomitant]
     Dosage: 7.5MG PER DAY
     Route: 048
     Dates: start: 20080114

REACTIONS (3)
  - DYSPNOEA [None]
  - PULMONARY EMBOLISM [None]
  - RESPIRATORY DISTRESS [None]
